FAERS Safety Report 16857916 (Version 1)
Quarter: 2019Q3

REPORT INFORMATION
  Report Type: Spontaneous
  Country: US (occurrence: US)
  Receive Date: 20190926
  Receipt Date: 20190926
  Transmission Date: 20191005
  Serious: No
  Sender: FDA-Public Use
  Company Number: US-ROMARKLABS-2019-US-000022

PATIENT
  Age: 83 Year
  Sex: Female

DRUGS (13)
  1. GABAPENTIN. [Concomitant]
     Active Substance: GABAPENTIN
     Indication: NEUROPATHY PERIPHERAL
     Route: 048
  2. DORZOLAMIDE [Concomitant]
     Active Substance: DORZOLAMIDE
     Indication: BORDERLINE GLAUCOMA
     Route: 047
  3. UNSPECIFIED PROBIOTIC [Concomitant]
     Indication: PRODUCT USED FOR UNKNOWN INDICATION
     Route: 048
     Dates: end: 20190203
  4. PRESERVISION EYE VITAMINS [Concomitant]
     Indication: VITAMIN SUPPLEMENTATION
     Route: 048
  5. TIMOPTIC [Concomitant]
     Active Substance: TIMOLOL MALEATE
     Indication: BORDERLINE GLAUCOMA
     Route: 047
  6. BABY ASPIRIN [Concomitant]
     Active Substance: ASPIRIN
     Indication: PRODUCT USED FOR UNKNOWN INDICATION
     Route: 048
  7. VITAMIN D [Concomitant]
     Active Substance: VITAMIN D NOS
     Indication: VITAMIN SUPPLEMENTATION
     Route: 048
     Dates: end: 20190203
  8. COQ10 [Concomitant]
     Active Substance: UBIDECARENONE
     Indication: PRODUCT USED FOR UNKNOWN INDICATION
     Route: 048
     Dates: end: 20190203
  9. POTASSIUM [Concomitant]
     Active Substance: POTASSIUM
     Indication: PRODUCT USED FOR UNKNOWN INDICATION
     Route: 048
  10. VITAMIN C [Concomitant]
     Active Substance: ASCORBIC ACID
     Indication: VITAMIN SUPPLEMENTATION
     Route: 048
     Dates: end: 20190203
  11. HYDROCHLOROTHIAZIDE. [Concomitant]
     Active Substance: HYDROCHLOROTHIAZIDE
     Indication: PRODUCT USED FOR UNKNOWN INDICATION
     Route: 048
  12. ALINIA [Suspect]
     Active Substance: NITAZOXANIDE
     Indication: CRYPTOSPORIDIOSIS INFECTION
     Dosage: 1 TABLET TWICE DAILY
     Route: 048
     Dates: start: 20190203, end: 20190205
  13. BIOTIN [Concomitant]
     Active Substance: BIOTIN
     Indication: NUTRITIONAL SUPPLEMENTATION
     Route: 048
     Dates: end: 20190203

REACTIONS (3)
  - Abdominal pain [Not Recovered/Not Resolved]
  - Frequent bowel movements [Not Recovered/Not Resolved]
  - Constipation [Recovered/Resolved]

NARRATIVE: CASE EVENT DATE: 20190203
